FAERS Safety Report 19091204 (Version 1)
Quarter: 2021Q2

REPORT INFORMATION
  Report Type: Spontaneous
  Country: US (occurrence: US)
  Receive Date: 20210405
  Receipt Date: 20210405
  Transmission Date: 20210717
  Serious: No
  Sender: FDA-Public Use
  Company Number: US-ELI_LILLY_AND_COMPANY-US202103014956

PATIENT
  Age: 55 Year
  Sex: Female

DRUGS (2)
  1. LYUMJEV [Suspect]
     Active Substance: INSULIN LISPRO-AABC
     Indication: PRODUCT USED FOR UNKNOWN INDICATION
     Dosage: UNK UNK, UNKNOWN
     Route: 065
  2. FIASP [Concomitant]
     Active Substance: INSULIN ASPART
     Indication: PRODUCT USED FOR UNKNOWN INDICATION

REACTIONS (5)
  - Infusion site erythema [Unknown]
  - Wrong technique in product usage process [Unknown]
  - Infusion site haemorrhage [Unknown]
  - Infusion site pruritus [Unknown]
  - Infusion site rash [Unknown]
